FAERS Safety Report 9119188 (Version 1)
Quarter: 2013Q1

REPORT INFORMATION
  Report Type: Spontaneous
  Country: US (occurrence: None)
  Receive Date: 20130221
  Receipt Date: 20130221
  Transmission Date: 20140127
  Serious: Yes (Death, Other)
  Sender: FDA-Public Use
  Company Number: None

PATIENT
  Age: 76 Year
  Sex: Female
  Weight: 78.02 kg

DRUGS (1)
  1. EXJADE 500 NOVARTIS EXJADE [Suspect]
     Route: 048
     Dates: start: 20120511, end: 20121215

REACTIONS (1)
  - General physical health deterioration [None]
